FAERS Safety Report 20837284 (Version 1)
Quarter: 2022Q2

REPORT INFORMATION
  Report Type: Spontaneous
  Country: US (occurrence: US)
  Receive Date: 20220517
  Receipt Date: 20220517
  Transmission Date: 20220721
  Serious: No
  Sender: FDA-Public Use
  Company Number: US-ALLERGAN-2143493US

PATIENT
  Sex: Female

DRUGS (3)
  1. CANASA [Suspect]
     Active Substance: MESALAMINE
     Indication: Colitis ulcerative
     Dosage: ACTUAL: ONE IN THE MORNING AND ONE IN THE EVENING (PRN INFLAMMATION)
     Dates: start: 1994
  2. CANASA [Suspect]
     Active Substance: MESALAMINE
     Indication: Crohn^s disease
  3. HUMIRA [Concomitant]
     Active Substance: ADALIMUMAB
     Indication: Colitis ulcerative
     Dosage: 1 DF

REACTIONS (1)
  - Dry eye [Not Recovered/Not Resolved]

NARRATIVE: CASE EVENT DATE: 20211201
